FAERS Safety Report 20059660 (Version 6)
Quarter: 2022Q1

REPORT INFORMATION
  Report Type: Report from Study
  Country: US (occurrence: US)
  Receive Date: 20211111
  Receipt Date: 20220107
  Transmission Date: 20220424
  Serious: Yes (Hospitalization)
  Sender: FDA-Public Use
  Company Number: US-HORIZON THERAPEUTICS-HZN-2021-008610

PATIENT

DRUGS (2)
  1. RAVICTI [Suspect]
     Active Substance: GLYCEROL PHENYLBUTYRATE
     Indication: Ornithine transcarbamoylase deficiency
     Dosage: 0.8 ML, TID, 1.1GM/ML
     Route: 048
     Dates: start: 20211102
  2. RAVICTI [Suspect]
     Active Substance: GLYCEROL PHENYLBUTYRATE
     Indication: Urea cycle disorder
     Dosage: 0.9 ML, TID, PO, 1.1GM/ML
     Route: 048
     Dates: start: 202111

REACTIONS (7)
  - Anaemia [Unknown]
  - Eructation [Unknown]
  - Infantile spitting up [Unknown]
  - Diarrhoea [Unknown]
  - Decreased appetite [Unknown]
  - Vomiting [Unknown]
  - Weight increased [Unknown]

NARRATIVE: CASE EVENT DATE: 20211101
